FAERS Safety Report 8795780 (Version 1)
Quarter: 2012Q4

REPORT INFORMATION
  Report Type: 
  Country: US (occurrence: US)
  Receive Date: 20120919
  Receipt Date: 20120919
  Transmission Date: 20130627
  Serious: No
  Sender: FDA-Public Use
  Company Number: US-PFIZER INC-2012227130

PATIENT
  Age: 40 Year
  Sex: Female

DRUGS (11)
  1. GLUCOTROL XL [Suspect]
     Dosage: 1 DF, 1x/day
     Route: 048
  2. TRIAMCINOLONE [Concomitant]
     Dosage: 1 DF, 3x/day
  3. METHYLPREDNISOLONE [Concomitant]
     Dosage: 6 to 1 tablets, once daily, directed on package labeling
     Route: 048
  4. FLEXERIL [Concomitant]
     Dosage: 1 DF, 1x/day, as needed at night
     Route: 048
  5. NAPROSYN [Concomitant]
     Dosage: 1 DF, 2x/day
     Route: 048
  6. TYLENOL [Concomitant]
     Dosage: 1 DF, every 8 hours (not to exceed 4000 mg/day)
     Route: 048
  7. MECLIZINE [Concomitant]
     Indication: DIZZINESS
     Dosage: 1 DF, 2x/day, as needed
     Route: 048
  8. CLARINEX-D [Concomitant]
     Dosage: 1 DF, 1x/day
     Route: 048
  9. FLONASE [Concomitant]
     Dosage: 2 DF, 1x/day
     Route: 045
  10. METFORMIN [Concomitant]
     Dosage: 1 DF, 2x/day
     Route: 048
  11. FIORICET [Concomitant]
     Indication: PAIN
     Dosage: 1 to 2 tablets, every four hours, as needed
     Route: 048

REACTIONS (2)
  - Essential hypertension [Unknown]
  - Blood glucose abnormal [Unknown]
